FAERS Safety Report 8952909 (Version 2)
Quarter: 2012Q4

REPORT INFORMATION
  Report Type: 
  Country: RS (occurrence: RS)
  Receive Date: 20121203
  Receipt Date: 20121219
  Transmission Date: 20130627
  Serious: No
  Sender: FDA-Public Use
  Company Number: RS-B.I. PHARMACEUTICALS,INC./RIDGEFIELD-2012-AP-01058AP

PATIENT
  Sex: Female

DRUGS (9)
  1. MOVALIS [Suspect]
     Indication: PAIN IN EXTREMITY
     Dates: start: 20121002
  2. MOVALIS [Suspect]
     Dosage: 15 mg
     Dates: end: 20121006
  3. TANAKAN [Suspect]
  4. EUTHYROX [Concomitant]
     Indication: HYPOTHYROIDISM
     Route: 048
     Dates: start: 20110803
  5. ZOLOFT (SERTRALINE) [Concomitant]
     Indication: MAJOR DEPRESSION
     Route: 048
     Dates: start: 2009
  6. TANSEC (BISOPROLOL) [Concomitant]
     Indication: HYPERTENSION
     Route: 048
     Dates: start: 2009
  7. CARDIOPIRIN (ACETYL-SALYCILIC ACID) [Concomitant]
     Route: 048
     Dates: start: 2009
  8. CITALEX (CITALOPRAM) [Concomitant]
     Route: 048
     Dates: start: 2010
  9. STILNOX (ZOLPIDEM) [Concomitant]

REACTIONS (3)
  - Overdose [Recovered/Resolved]
  - Contusion [Unknown]
  - Somnolence [Unknown]
